FAERS Safety Report 14624812 (Version 3)
Quarter: 2018Q2

REPORT INFORMATION
  Report Type: Spontaneous
  Country: US (occurrence: US)
  Receive Date: 20180312
  Receipt Date: 20180405
  Transmission Date: 20180711
  Serious: No
  Sender: FDA-Public Use
  Company Number: US-PFIZER INC-2018097963

PATIENT
  Sex: Female
  Weight: 62.13 kg

DRUGS (1)
  1. VENLAFAXINE HCL [Suspect]
     Active Substance: VENLAFAXINE HYDROCHLORIDE
     Indication: DEPRESSION
     Dosage: 150 MG, 1X/DAY (1 DAILY)
     Route: 048
     Dates: start: 201802

REACTIONS (3)
  - Drug ineffective [Not Recovered/Not Resolved]
  - Sleep disorder [Unknown]
  - Nervousness [Unknown]
